FAERS Safety Report 7217651-1 (Version None)
Quarter: 2010Q4

REPORT INFORMATION
  Report Type: 
  Country: None (occurrence: None)
  Receive Date: 20101230
  Receipt Date: 20101214
  Transmission Date: 20110411
  Serious: Yes (Other)
  Sender: FDA-Public Use
  Company Number: ACO_20973_2010

PATIENT
  Age: 69 Year
  Sex: Female

DRUGS (5)
  1. AMPYRA [Suspect]
     Indication: PRODUCT USED FOR UNKNOWN INDICATION
     Dosage: 10 MG, QD, ORAL; 10 MG, BID, ORAL; 10 MG, QD,ORAL
     Route: 048
     Dates: start: 20100704, end: 20100719
  2. AMPYRA [Suspect]
     Indication: PRODUCT USED FOR UNKNOWN INDICATION
     Dosage: 10 MG, QD, ORAL; 10 MG, BID, ORAL; 10 MG, QD,ORAL
     Route: 048
     Dates: start: 20100720, end: 20100720
  3. AMPYRA [Suspect]
     Indication: PRODUCT USED FOR UNKNOWN INDICATION
     Dosage: 10 MG, QD, ORAL; 10 MG, BID, ORAL; 10 MG, QD,ORAL
     Route: 048
     Dates: start: 20100728, end: 20100730
  4. DOXEPIN HCL [Concomitant]
  5. LORAZEPAM [Concomitant]

REACTIONS (5)
  - ABASIA [None]
  - ASTHENIA [None]
  - INAPPROPRIATE SCHEDULE OF DRUG ADMINISTRATION [None]
  - THERAPEUTIC RESPONSE UNEXPECTED [None]
  - TREMOR [None]
